FAERS Safety Report 23356383 (Version 1)
Quarter: 2024Q1

REPORT INFORMATION
  Report Type: Spontaneous
  Country: TR (occurrence: TR)
  Receive Date: 20240102
  Receipt Date: 20240102
  Transmission Date: 20240410
  Serious: Yes (Other)
  Sender: FDA-Public Use
  Company Number: TR-002147023-NVSC2023TR273789

PATIENT
  Age: 49 Year
  Sex: Female

DRUGS (1)
  1. XOLAIR [Suspect]
     Active Substance: OMALIZUMAB
     Indication: Hypersensitivity
     Dosage: 2 DOSAGE FORM, QMO
     Route: 065

REACTIONS (4)
  - Angioedema [Unknown]
  - Pruritus [Unknown]
  - Product supply issue [Unknown]
  - Off label use [Unknown]
